FAERS Safety Report 20266971 (Version 17)
Quarter: 2023Q2

REPORT INFORMATION
  Report Type: Report from Study
  Country: CN (occurrence: None)
  Receive Date: 20211231
  Receipt Date: 20230623
  Transmission Date: 20230722
  Serious: Yes (Death, Hospitalization)
  Sender: FDA-Public Use
  Company Number: CN-ROCHE-2990144

PATIENT
  Age: 76 Year
  Sex: Male
  Weight: 65 kg

DRUGS (100)
  1. ATEZOLIZUMAB [Suspect]
     Active Substance: ATEZOLIZUMAB
     Indication: Oesophageal squamous cell carcinoma
     Dosage: ON 03/DEC/2021 HE RECEIVED MOST RECENT DOSE PRIOR TO AE AND SAE
     Route: 041
     Dates: start: 20211021
  2. TIRAGOLUMAB [Suspect]
     Active Substance: TIRAGOLUMAB
     Indication: Oesophageal squamous cell carcinoma
     Dosage: ON 03/DEC/2021, HE RECEIVED MOST RECENT DOSE PRIOR TO AE AND SAE
     Route: 042
     Dates: start: 20211021
  3. ASPIRIN [Concomitant]
     Active Substance: ASPIRIN
     Route: 048
     Dates: start: 201807, end: 20211224
  4. SIMVASTATIN [Concomitant]
     Active Substance: SIMVASTATIN
     Route: 048
     Dates: start: 201807, end: 20211224
  5. SULFAMETHOXAZOLE [Concomitant]
     Active Substance: SULFAMETHOXAZOLE
     Dates: start: 20211226, end: 20211229
  6. CEFOPERAZONE SODIUM\SULBACTAM SODIUM [Concomitant]
     Active Substance: CEFOPERAZONE SODIUM\SULBACTAM SODIUM
     Route: 042
     Dates: start: 20211228, end: 20220112
  7. CEFOPERAZONE SODIUM\SULBACTAM SODIUM [Concomitant]
     Active Substance: CEFOPERAZONE SODIUM\SULBACTAM SODIUM
     Dosage: ANTI-INFLAMMATORY
     Route: 042
     Dates: start: 20211225, end: 20211225
  8. CEFOPERAZONE SODIUM\SULBACTAM SODIUM [Concomitant]
     Active Substance: CEFOPERAZONE SODIUM\SULBACTAM SODIUM
     Dosage: ANTI-INFLAMMATORY
     Route: 042
     Dates: start: 20211226, end: 20211226
  9. CEFOPERAZONE SODIUM\SULBACTAM SODIUM [Concomitant]
     Active Substance: CEFOPERAZONE SODIUM\SULBACTAM SODIUM
     Dosage: ANTI-INFLAMMATORY
     Route: 042
     Dates: start: 20211227, end: 20211227
  10. BROMHEXINE HYDROCHLORIDE [Concomitant]
     Active Substance: BROMHEXINE HYDROCHLORIDE
     Route: 042
     Dates: start: 20211228, end: 20220115
  11. BROMHEXINE HYDROCHLORIDE [Concomitant]
     Active Substance: BROMHEXINE HYDROCHLORIDE
     Dosage: EXPECTORANT
     Route: 042
     Dates: start: 20211225, end: 20211225
  12. BROMHEXINE HYDROCHLORIDE [Concomitant]
     Active Substance: BROMHEXINE HYDROCHLORIDE
     Route: 042
     Dates: start: 20211226, end: 20211226
  13. BROMHEXINE HYDROCHLORIDE [Concomitant]
     Active Substance: BROMHEXINE HYDROCHLORIDE
     Dosage: EXPECTORANT
     Route: 042
     Dates: start: 20211227, end: 20211227
  14. DOXOFYLLINE [Concomitant]
     Active Substance: DOXOFYLLINE
     Indication: Asthma
     Route: 042
     Dates: start: 20211228, end: 20220115
  15. DOXOFYLLINE [Concomitant]
     Active Substance: DOXOFYLLINE
     Route: 042
     Dates: start: 20211225, end: 20211225
  16. DOXOFYLLINE [Concomitant]
     Active Substance: DOXOFYLLINE
     Route: 042
     Dates: start: 20211226, end: 20211226
  17. DOXOFYLLINE [Concomitant]
     Active Substance: DOXOFYLLINE
     Dosage: ASTHMA
     Route: 042
     Dates: start: 20211227, end: 20211227
  18. METHYLPREDNISOLONE SODIUM SUCCINATE [Concomitant]
     Active Substance: METHYLPREDNISOLONE SODIUM SUCCINATE
     Route: 042
     Dates: start: 20211227, end: 20211231
  19. METHYLPREDNISOLONE SODIUM SUCCINATE [Concomitant]
     Active Substance: METHYLPREDNISOLONE SODIUM SUCCINATE
     Route: 042
     Dates: start: 20220101, end: 20220110
  20. METHYLPREDNISOLONE SODIUM SUCCINATE [Concomitant]
     Active Substance: METHYLPREDNISOLONE SODIUM SUCCINATE
     Dosage: ANTI-INFLAMMATORY
     Route: 042
     Dates: start: 20211225, end: 20211225
  21. METHYLPREDNISOLONE SODIUM SUCCINATE [Concomitant]
     Active Substance: METHYLPREDNISOLONE SODIUM SUCCINATE
     Dosage: ANTI-INFLAMMATORY
     Route: 042
     Dates: start: 20211226, end: 20211226
  22. DALTEPARIN SODIUM [Concomitant]
     Active Substance: DALTEPARIN SODIUM
     Route: 058
     Dates: start: 20211226, end: 20220115
  23. LEVOFLOXACIN [Concomitant]
     Active Substance: LEVOFLOXACIN
     Route: 042
     Dates: start: 20211229, end: 20220112
  24. GANCICLOVIR [Concomitant]
     Active Substance: GANCICLOVIR
     Route: 042
     Dates: start: 20211229, end: 20220112
  25. LACTULOSE [Concomitant]
     Active Substance: LACTULOSE
     Dates: start: 20211226, end: 20220110
  26. MAGNOLIA [Concomitant]
     Dates: start: 20211226, end: 20220101
  27. RABEPRAZOLE SODIUM [Concomitant]
     Active Substance: RABEPRAZOLE SODIUM
     Dates: start: 20211225, end: 20211229
  28. RABEPRAZOLE SODIUM [Concomitant]
     Active Substance: RABEPRAZOLE SODIUM
     Dosage: INHIBITS STOMACH ACID
     Route: 042
     Dates: start: 20211225, end: 20211225
  29. RABEPRAZOLE SODIUM [Concomitant]
     Active Substance: RABEPRAZOLE SODIUM
     Dosage: INHIBITS STOMACH ACID
     Dates: start: 20211226, end: 20211226
  30. RABEPRAZOLE SODIUM [Concomitant]
     Active Substance: RABEPRAZOLE SODIUM
     Dosage: INHIBITS STOMACH ACID
     Dates: start: 20211227, end: 20211227
  31. OLANZAPINE [Concomitant]
     Active Substance: OLANZAPINE
     Dates: start: 20220112, end: 20220115
  32. TIGECYCLINE [Concomitant]
     Active Substance: TIGECYCLINE
     Route: 042
     Dates: start: 20220114, end: 20220115
  33. TIGECYCLINE [Concomitant]
     Active Substance: TIGECYCLINE
     Route: 042
     Dates: start: 20220112, end: 20220112
  34. TIGECYCLINE [Concomitant]
     Active Substance: TIGECYCLINE
     Route: 042
     Dates: start: 20220113, end: 20220113
  35. MICAFUNGIN SODIUM [Concomitant]
     Active Substance: MICAFUNGIN SODIUM
     Route: 042
     Dates: start: 20220112, end: 20220115
  36. AMIKACIN SULFATE [Concomitant]
     Active Substance: AMIKACIN SULFATE
     Route: 042
     Dates: start: 20220112, end: 20220114
  37. BUDESONIDE [Concomitant]
     Active Substance: BUDESONIDE
     Indication: Asthma
     Route: 055
     Dates: start: 20211231, end: 20220105
  38. ACETYLCYSTEINE [Concomitant]
     Active Substance: ACETYLCYSTEINE
     Route: 055
     Dates: start: 20211231, end: 20220105
  39. ACETYLCYSTEINE [Concomitant]
     Active Substance: ACETYLCYSTEINE
     Route: 055
     Dates: start: 20220108, end: 20220115
  40. AMBROXOL HYDROCHLORIDE [Concomitant]
     Active Substance: AMBROXOL HYDROCHLORIDE
     Route: 055
     Dates: start: 20220101, end: 20220115
  41. VITAMIN K1 [Concomitant]
     Active Substance: PHYTONADIONE
     Dosage: VITAMIN SUPPLEMENTATION
     Dates: start: 20211225, end: 20211225
  42. VITAMIN K3 [Concomitant]
     Indication: Vitamin supplementation
     Route: 030
     Dates: start: 20211226, end: 20220115
  43. REMIFENTANIL HYDROCHLORIDE [Concomitant]
     Active Substance: REMIFENTANIL HYDROCHLORIDE
     Indication: Sedation
     Dates: start: 20211225, end: 20220102
  44. REMIFENTANIL HYDROCHLORIDE [Concomitant]
     Active Substance: REMIFENTANIL HYDROCHLORIDE
     Dates: start: 20220104, end: 20220115
  45. PROPOFOL [Concomitant]
     Active Substance: PROPOFOL
     Dates: start: 20211225, end: 20211225
  46. PROPOFOL [Concomitant]
     Active Substance: PROPOFOL
     Dates: start: 20211227, end: 20220115
  47. MIDAZOLAM [Concomitant]
     Active Substance: MIDAZOLAM
     Indication: Sedation
     Dates: start: 20211225, end: 20211225
  48. MIDAZOLAM [Concomitant]
     Active Substance: MIDAZOLAM
     Dates: start: 20211228, end: 20220107
  49. MIDAZOLAM [Concomitant]
     Active Substance: MIDAZOLAM
     Dates: start: 20220109, end: 20220109
  50. MIDAZOLAM [Concomitant]
     Active Substance: MIDAZOLAM
     Dates: start: 20220111, end: 20220112
  51. MIDAZOLAM [Concomitant]
     Active Substance: MIDAZOLAM
     Dates: start: 20220114, end: 20220114
  52. DOPAMINE [Concomitant]
     Active Substance: DOPAMINE HYDROCHLORIDE
     Dates: start: 20211225, end: 20220104
  53. POTASSIUM CHLORIDE [Concomitant]
     Active Substance: POTASSIUM CHLORIDE
     Dates: start: 20211225, end: 20211227
  54. POTASSIUM CHLORIDE [Concomitant]
     Active Substance: POTASSIUM CHLORIDE
     Dates: start: 20211229, end: 20220113
  55. POTASSIUM ASPARTATE [Concomitant]
     Active Substance: POTASSIUM ASPARTATE
     Dates: start: 20211226, end: 20211227
  56. POTASSIUM ASPARTATE [Concomitant]
     Active Substance: POTASSIUM ASPARTATE
     Dates: start: 20211229, end: 20211229
  57. POTASSIUM ASPARTATE [Concomitant]
     Active Substance: POTASSIUM ASPARTATE
     Dates: start: 20211231, end: 20220102
  58. POTASSIUM ASPARTATE [Concomitant]
     Active Substance: POTASSIUM ASPARTATE
     Dates: start: 20220104, end: 20220107
  59. CONCENTRATE OF TRACE ELEMENTS [Concomitant]
     Dates: start: 20211226, end: 20211227
  60. CONCENTRATE OF TRACE ELEMENTS [Concomitant]
     Dates: start: 20211229, end: 20211229
  61. CONCENTRATE OF TRACE ELEMENTS [Concomitant]
     Dates: start: 20211231, end: 20220102
  62. CONCENTRATE OF TRACE ELEMENTS [Concomitant]
     Dates: start: 20220104, end: 20220113
  63. POTASSIUM PHOSPHATE, MONOBASIC [Concomitant]
     Active Substance: POTASSIUM PHOSPHATE, MONOBASIC
     Dates: start: 20211227, end: 20211227
  64. POTASSIUM PHOSPHATE, MONOBASIC [Concomitant]
     Active Substance: POTASSIUM PHOSPHATE, MONOBASIC
     Dates: start: 20211229, end: 20211229
  65. POTASSIUM PHOSPHATE, MONOBASIC [Concomitant]
     Active Substance: POTASSIUM PHOSPHATE, MONOBASIC
     Dates: start: 20220103, end: 20220103
  66. POTASSIUM PHOSPHATE, MONOBASIC [Concomitant]
     Active Substance: POTASSIUM PHOSPHATE, MONOBASIC
     Dates: start: 20220109, end: 20220111
  67. ENEMIA GLYCERINI [Concomitant]
     Dates: start: 20211228, end: 20211228
  68. ENEMIA GLYCERINI [Concomitant]
     Dates: start: 20211230, end: 20211230
  69. ENEMIA GLYCERINI [Concomitant]
     Dates: start: 20220109, end: 20220109
  70. FUROSEMIDE [Concomitant]
     Active Substance: FUROSEMIDE
     Indication: Polyuria
     Dates: start: 20211228, end: 20211230
  71. FUROSEMIDE [Concomitant]
     Active Substance: FUROSEMIDE
     Dates: start: 20220101, end: 20220102
  72. FUROSEMIDE [Concomitant]
     Active Substance: FUROSEMIDE
     Dates: start: 20220105, end: 20220106
  73. FUROSEMIDE [Concomitant]
     Active Substance: FUROSEMIDE
     Dates: start: 20220108, end: 20220108
  74. FUROSEMIDE [Concomitant]
     Active Substance: FUROSEMIDE
     Dates: start: 20220110, end: 20220114
  75. INSULIN NOS [Concomitant]
     Active Substance: INSULIN NOS
     Dates: start: 20211230, end: 20211230
  76. INSULIN NOS [Concomitant]
     Active Substance: INSULIN NOS
     Dates: start: 20220104, end: 20220104
  77. BUTORPHANOL TARTRATE [Concomitant]
     Active Substance: BUTORPHANOL TARTRATE
     Indication: Sedation
     Dates: start: 20220102, end: 20220104
  78. DEXMEDETOMIDINE HYDROCHLORIDE [Concomitant]
     Active Substance: DEXMEDETOMIDINE HYDROCHLORIDE
     Indication: Sedation
     Dates: start: 20220109, end: 20220109
  79. MAGNESIUM SULFATE [Concomitant]
     Active Substance: MAGNESIUM SULFATE
     Dates: start: 20220111, end: 20220113
  80. LYSINE ACETYLSALICYLATE [Concomitant]
     Active Substance: ASPIRIN DL-LYSINE
     Dates: start: 20220112, end: 20220112
  81. LYSINE ACETYLSALICYLATE [Concomitant]
     Active Substance: ASPIRIN DL-LYSINE
     Dates: start: 20220114, end: 20220114
  82. MEPERIDINE HYDROCHLORIDE [Concomitant]
     Active Substance: MEPERIDINE HYDROCHLORIDE
     Indication: Sedation
     Dates: start: 20220114, end: 20220114
  83. VANCOMYCIN HYDROCHLORIDE [Concomitant]
     Active Substance: VANCOMYCIN HYDROCHLORIDE
     Route: 042
     Dates: start: 20220114, end: 20220115
  84. METARAMINOL BITARTRATE [Concomitant]
     Active Substance: METARAMINOL BITARTRATE
     Dates: start: 20220114, end: 20220115
  85. ROTUNDINE [Concomitant]
     Indication: Analgesic therapy
     Dates: start: 20220114, end: 20220114
  86. ESOMEPRAZOLE SODIUM [Concomitant]
     Active Substance: ESOMEPRAZOLE SODIUM
     Dates: start: 20220115, end: 20220115
  87. HEMOCOAGULASE ATROX [Concomitant]
     Indication: Haemostasis
     Dates: start: 20220115, end: 20220115
  88. ALBUMINE HUMAN [Concomitant]
     Dates: start: 20211226, end: 20211226
  89. ALBUMINE HUMAN [Concomitant]
     Dates: start: 20211228, end: 20211230
  90. ALBUMINE HUMAN [Concomitant]
     Dates: start: 20220106, end: 20220107
  91. ALBUMINE HUMAN [Concomitant]
     Dates: start: 20220112, end: 20220112
  92. ALBUMINE HUMAN [Concomitant]
     Dates: start: 20220114, end: 20220114
  93. METOPROLOL [Concomitant]
     Active Substance: METOPROLOL
     Route: 048
     Dates: start: 201807, end: 20211224
  94. VITAMIN K1 [Concomitant]
     Active Substance: PHYTONADIONE
     Indication: Vitamin supplementation
     Dates: start: 20211225, end: 20211225
  95. COMPOUND LIDOCAINE HYDROCHLORIDE [Concomitant]
     Dates: start: 20211225, end: 20211225
  96. NOREPINEPHRINE [Concomitant]
     Active Substance: NOREPINEPHRINE
     Dates: start: 20211229, end: 20211229
  97. NOREPINEPHRINE [Concomitant]
     Active Substance: NOREPINEPHRINE
     Dates: start: 20220104, end: 20220104
  98. NOREPINEPHRINE [Concomitant]
     Active Substance: NOREPINEPHRINE
     Dates: start: 20220109, end: 20220109
  99. NOREPINEPHRINE [Concomitant]
     Active Substance: NOREPINEPHRINE
     Dates: start: 20220114, end: 20220114
  100. LIDOCAINE HYDROCHLORIDE [Concomitant]
     Active Substance: LIDOCAINE HYDROCHLORIDE
     Dates: start: 20220107, end: 20220107

REACTIONS (2)
  - Pneumonia [Fatal]
  - Pneumonitis [Not Recovered/Not Resolved]

NARRATIVE: CASE EVENT DATE: 20211215
